FAERS Safety Report 5579490-7 (Version None)
Quarter: 2008Q1

REPORT INFORMATION
  Report Type: 
  Country: None (occurrence: None)
  Receive Date: 20080102
  Receipt Date: 20071219
  Transmission Date: 20080703
  Serious: Yes (Other)
  Sender: FDA-Public Use
  Company Number: US-ELI_LILLY_AND_COMPANY-US200703004265

PATIENT
  Age: 55 Year
  Sex: Male

DRUGS (17)
  1. CYMBALTA [Suspect]
     Indication: NEUROPATHY PERIPHERAL
     Dosage: 30 MG, DAILY (1/D)
     Dates: start: 20070307, end: 20070301
  2. CYMBALTA [Suspect]
     Dosage: 60 MG, DAILY (1/D)
     Dates: start: 20070301, end: 20070101
  3. CYMBALTA [Suspect]
     Dosage: 60 MG, EACH EVENING
     Dates: start: 20071215
  4. CELEXA [Concomitant]
  5. SYNTHROID [Concomitant]
  6. BACLOFEN [Concomitant]
  7. POTASSIUM CHLORIDE [Concomitant]
     Dosage: UNK, DAILY (1/D)
  8. PROVIGIL [Concomitant]
  9. SINGULAIR [Concomitant]
  10. ZYRTEC [Concomitant]
  11. VALIUM [Concomitant]
  12. FLONASE [Concomitant]
  13. SPIRIVA [Concomitant]
  14. ANDROGENS [Concomitant]
  15. OXYCODONE HCL [Concomitant]
     Indication: PAIN
  16. ZETIA [Concomitant]
  17. ADIPEX [Concomitant]

REACTIONS (7)
  - CARPAL TUNNEL SYNDROME [None]
  - ERECTILE DYSFUNCTION [None]
  - FEELING HOT [None]
  - FOOT FRACTURE [None]
  - HYPERHIDROSIS [None]
  - ORGASM ABNORMAL [None]
  - SOMNOLENCE [None]
